FAERS Safety Report 12565849 (Version 1)
Quarter: 2016Q3

REPORT INFORMATION
  Report Type: Spontaneous
  Country: CA (occurrence: CA)
  Receive Date: 20160718
  Receipt Date: 20160718
  Transmission Date: 20161109
  Serious: Yes (Hospitalization, Other)
  Sender: FDA-Public Use
  Company Number: CA-PFIZER INC-2016342528

PATIENT
  Age: 70 Year
  Sex: Female
  Weight: 68 kg

DRUGS (29)
  1. LEUCOVORIN. [Concomitant]
     Active Substance: LEUCOVORIN
     Dosage: 5 MG, 1X/DAY
  2. PREDNISONE. [Concomitant]
     Active Substance: PREDNISONE
     Dosage: UNK
  3. CALCIUM CARBONATE. [Concomitant]
     Active Substance: CALCIUM CARBONATE
     Dosage: 1250 MG, 2X/DAY
  4. IMOVANE [Concomitant]
     Active Substance: ZOPICLONE
     Dosage: UNK
  5. PANTOLOC [Concomitant]
     Active Substance: PANTOPRAZOLE SODIUM
     Dosage: 20 MG, 1X/DAY (ONCE IN ONE DAY)
  6. PANTOPRAZOLE [Concomitant]
     Active Substance: PANTOPRAZOLE SODIUM
     Dosage: UNK
  7. NADOLOL. [Concomitant]
     Active Substance: NADOLOL
     Dosage: 160 MG, 1X/DAY (ONCE IN ONE DAY)
  8. TYLENOL [Concomitant]
     Active Substance: ACETAMINOPHEN
     Dosage: UNK
  9. SIMPONI [Suspect]
     Active Substance: GOLIMUMAB
     Indication: RHEUMATOID ARTHRITIS
     Dosage: 136 MG, UNK
     Route: 042
  10. ERGOCALCIFEROL. [Concomitant]
     Active Substance: ERGOCALCIFEROL
     Dosage: 2000 IU, 1X/DAY (ONCE IN ONE DAY)
  11. AMLODIPINE [Concomitant]
     Active Substance: AMLODIPINE BESYLATE
     Dosage: 10 MG, 1X/DAY
  12. HYDROMORPHONE [Concomitant]
     Active Substance: HYDROMORPHONE
     Dosage: UNK
  13. IPRATROPIUM [Concomitant]
     Active Substance: IPRATROPIUM
     Dosage: UNK
  14. LASIX [Concomitant]
     Active Substance: FUROSEMIDE
     Dosage: 80 MG, UNK
  15. BETACAROTENE [Concomitant]
     Active Substance: .BETA.-CAROTENE
     Dosage: UNK
  16. FISH OIL [Concomitant]
     Active Substance: FISH OIL
     Dosage: UNK
  17. ROSUVASTATIN. [Concomitant]
     Active Substance: ROSUVASTATIN
     Dosage: 20 MG, 1X/DAY (ONCE IN ONE DAY)
  18. VITAMIN C [Concomitant]
     Active Substance: ASCORBIC ACID
     Dosage: 1 G, 1X/DAY (ONCE IN ONE DAY)
  19. ALTACE [Suspect]
     Active Substance: RAMIPRIL
     Dosage: 20 MG, 1X/DAY
     Route: 065
  20. DIAMICRON [Concomitant]
     Active Substance: GLICLAZIDE
     Dosage: 60 MG, 1X/DAY (ONE IN ONE DAY)
  21. LOSEC [Concomitant]
     Active Substance: OMEPRAZOLE
     Dosage: 20 MG, 1X/DAY (ONCE IN ONE DAY)
  22. NYSTATIN. [Concomitant]
     Active Substance: NYSTATIN
     Dosage: UNK
  23. SPIRONOLACTONE. [Concomitant]
     Active Substance: SPIRONOLACTONE
     Dosage: 12.5 MG, 1X/DAY (ONCE IN ONE DAY)
  24. ADVAIR HFA [Concomitant]
     Active Substance: FLUTICASONE PROPIONATE\SALMETEROL XINAFOATE
     Dosage: UNK, 2X/DAY (ONCE EVERY 12 HOURS)
  25. COLACE [Concomitant]
     Active Substance: DOCUSATE SODIUM
     Dosage: 100 MG, 1X/DAY
  26. FRAGMIN [Concomitant]
     Active Substance: DALTEPARIN SODIUM
     Dosage: 5000 MG, 1X/DAY (ONCE IN ONE DAY)
  27. GLICLAZIDE [Concomitant]
     Active Substance: GLICLAZIDE
     Dosage: UNK
  28. SALBUTAMOL [Concomitant]
     Active Substance: ALBUTEROL
     Dosage: UNK
  29. VENTOLIN [Concomitant]
     Active Substance: ALBUTEROL SULFATE
     Dosage: UNK

REACTIONS (10)
  - Cardiac valve vegetation [Recovered/Resolved]
  - Post procedural haemorrhage [Recovered/Resolved]
  - Respiratory distress [Recovered/Resolved]
  - Urinary tract infection enterococcal [Recovered/Resolved]
  - Sepsis [Recovered/Resolved]
  - Haemoglobin decreased [Recovered/Resolved]
  - Pneumonia legionella [Recovered/Resolved]
  - Rheumatoid arthritis [Recovered/Resolved]
  - Retroperitoneal haemorrhage [Recovered/Resolved]
  - Acute kidney injury [Recovered/Resolved]
